FAERS Safety Report 8287898-4 (Version None)
Quarter: 2012Q2

REPORT INFORMATION
  Report Type: 
  Country: None (occurrence: None)
  Receive Date: 20120416
  Receipt Date: 20120412
  Transmission Date: 20120825
  Serious: Yes (Other)
  Sender: FDA-Public Use
  Company Number: US-GLAXOSMITHKLINE-A0973385A

PATIENT
  Age: 58 Year
  Sex: Female

DRUGS (1)
  1. ABREVA [Suspect]
     Indication: ACNE
     Route: 061
     Dates: start: 20120409

REACTIONS (6)
  - LIP SWELLING [None]
  - DRUG ADMINISTRATION ERROR [None]
  - CEREBROVASCULAR ACCIDENT [None]
  - SWELLING FACE [None]
  - SKIN EXFOLIATION [None]
  - HYPOAESTHESIA [None]
